FAERS Safety Report 9638422 (Version 3)
Quarter: 2013Q4

REPORT INFORMATION
  Report Type: Spontaneous
  Country: US (occurrence: US)
  Receive Date: 20131022
  Receipt Date: 20131101
  Transmission Date: 20140711
  Serious: No
  Sender: FDA-Public Use
  Company Number: US-009507513-1310USA004640

PATIENT
  Age: 25 Year
  Sex: Female
  Weight: 102.95 kg

DRUGS (1)
  1. IMPLANON [Suspect]
     Indication: CONTRACEPTION
     Dosage: 1 ROD
     Route: 059
     Dates: start: 201011

REACTIONS (2)
  - Medical device complication [Not Recovered/Not Resolved]
  - Implant site scar [Not Recovered/Not Resolved]
